FAERS Safety Report 12186584 (Version 2)
Quarter: 2016Q2

REPORT INFORMATION
  Report Type: Spontaneous
  Country: TW (occurrence: TW)
  Receive Date: 20160317
  Receipt Date: 20160404
  Transmission Date: 20160815
  Serious: Yes (Other)
  Sender: FDA-Public Use
  Company Number: TW-SUN PHARMACEUTICAL INDUSTRIES LTD-2016RR-113300

PATIENT

DRUGS (5)
  1. COLCHICINE. [Interacting]
     Active Substance: COLCHICINE
     Dosage: ONCE OR TWICE DAILY
     Route: 048
  2. CEFAZOLIN [Concomitant]
     Active Substance: CEFAZOLIN
     Indication: PRODUCT USED FOR UNKNOWN INDICATION
     Route: 042
  3. FLUCONAZOLE. [Suspect]
     Active Substance: FLUCONAZOLE
     Indication: FUNGAL CYSTITIS
     Dosage: 100 MG, QD
     Route: 048
  4. COLCHICINE. [Interacting]
     Active Substance: COLCHICINE
     Indication: GOUTY ARTHRITIS
     Dosage: 0.9 MG, QD
     Route: 048
  5. COLCHICINE. [Interacting]
     Active Substance: COLCHICINE
     Indication: GOUTY ARTHRITIS
     Dosage: 0.6 MG, BID
     Route: 048

REACTIONS (2)
  - Neuromyopathy [Recovered/Resolved]
  - Drug interaction [Recovered/Resolved]
